FAERS Safety Report 6151093-5 (Version None)
Quarter: 2009Q2

REPORT INFORMATION
  Report Type: 
  Country: None (occurrence: None)
  Receive Date: 20090410
  Receipt Date: 20090404
  Transmission Date: 20091009
  Serious: Yes (Other)
  Sender: FDA-Public Use
  Company Number: BR-PFIZER INC-2009183666

PATIENT

DRUGS (3)
  1. LONITEN [Suspect]
     Dosage: UNK
     Dates: start: 20010101
  2. ATENOLOL [Concomitant]
     Dosage: UNK
  3. CAPTOPRIL [Concomitant]
     Dosage: UNK

REACTIONS (2)
  - DRUG INEFFECTIVE [None]
  - RENAL FAILURE [None]
